FAERS Safety Report 7383772-6 (Version None)
Quarter: 2011Q1

REPORT INFORMATION
  Report Type: 
  Country: None (occurrence: None)
  Receive Date: 20110330
  Receipt Date: 20090930
  Transmission Date: 20110831
  Serious: Yes (Other)
  Sender: FDA-Public Use
  Company Number: US-BAYER-201041891NA

PATIENT
  Sex: Female
  Weight: 88 kg

DRUGS (12)
  1. TRASYLOL [Suspect]
     Dosage: 200 ML PUMP PRIME
     Route: 042
     Dates: start: 20040511, end: 20040511
  2. LASIX [Concomitant]
  3. ALDACTONE [Concomitant]
  4. HEPARIN SODIUM [Concomitant]
     Dosage: 37000 U, UNK
     Dates: start: 20040511
  5. INSULIN [INSULIN] [Concomitant]
  6. EPINEPHRINE [Concomitant]
     Dosage: 0.5 MCG/KG/MIN, CARDIOPULMONARY BYPASS PUMP
     Route: 041
     Dates: start: 20040511
  7. ZOLOFT [Concomitant]
  8. PROTAMINE SULFATE [Concomitant]
     Dosage: 370 MG, CARDIOPULMONARY BYPASS PUMP
     Dates: start: 20040511
  9. ASPIRIN [Concomitant]
  10. VERSED [Concomitant]
     Dosage: 20 MG, UNK
     Route: 042
     Dates: start: 20040511
  11. PHENYLEPHRINE HCL [Concomitant]
     Dosage: 20 MG, CARDIOPULMONARY BYPASS PUMP
     Dates: start: 20040511
  12. TRASYLOL [Suspect]
     Indication: CORONARY ARTERY BYPASS
     Dosage: 1ML, BOULS OF UNKNOWN AMOUNT FOLLOWED BY A CONTINUOUS INFUSION OF 50 CC/HR
     Route: 042
     Dates: start: 20040511, end: 20040511

REACTIONS (15)
  - RENAL INJURY [None]
  - MULTI-ORGAN FAILURE [None]
  - PAIN [None]
  - MENTAL DISORDER [None]
  - UNEVALUABLE EVENT [None]
  - RENAL DISORDER [None]
  - EMOTIONAL DISTRESS [None]
  - NERVOUSNESS [None]
  - ANXIETY [None]
  - FEAR [None]
  - DEPRESSION [None]
  - INJURY [None]
  - FEAR OF DEATH [None]
  - ANHEDONIA [None]
  - RENAL FAILURE [None]
